FAERS Safety Report 4768689-5 (Version None)
Quarter: 2005Q3

REPORT INFORMATION
  Report Type: 
  Country: None (occurrence: None)
  Receive Date: 20050914
  Receipt Date: 20050830
  Transmission Date: 20060218
  Serious: Yes (Hospitalization, Other)
  Sender: FDA-Public Use
  Company Number: PHBS2005ES12690

PATIENT
  Age: 57 Year
  Sex: Female

DRUGS (1)
  1. TEGRETOL [Suspect]
     Dosage: 400 MG, Q8H
     Route: 048
     Dates: start: 20050601

REACTIONS (3)
  - CRYPTOGENIC ORGANIZING PNEUMONIA [None]
  - EOSINOPHILIA [None]
  - PNEUMONITIS [None]
